FAERS Safety Report 15362698 (Version 1)
Quarter: 2018Q3

REPORT INFORMATION
  Report Type: Spontaneous
  Country: CH (occurrence: CH)
  Receive Date: 20180907
  Receipt Date: 20180907
  Transmission Date: 20181010
  Serious: Yes (Hospitalization)
  Sender: FDA-Public Use
  Company Number: CH-BAYER-2018-162565

PATIENT
  Age: 74 Year
  Sex: Male

DRUGS (11)
  1. TOREM [Concomitant]
     Active Substance: TORSEMIDE
     Route: 048
  2. ZYLORIC [Concomitant]
     Active Substance: ALLOPURINOL
     Route: 048
  3. CANDESARTAN CILEXETIL. [Concomitant]
     Active Substance: CANDESARTAN CILEXETIL
     Route: 048
  4. PANTOPRAZOLE SODIUM. [Concomitant]
     Active Substance: PANTOPRAZOLE SODIUM
     Route: 048
  5. GINKGO BILOBA [Suspect]
     Active Substance: GINKGO
     Route: 048
  6. INSULIN [Concomitant]
     Active Substance: INSULIN NOS
     Route: 058
  7. ASPIRIN CARDIO 100 MG [Suspect]
     Active Substance: ASPIRIN
  8. EYLEA [Suspect]
     Active Substance: AFLIBERCEPT
     Indication: DIABETIC RETINAL OEDEMA
     Dosage: 2 MG INTO UNKNOWN EYE; TOTAL NUMBER OF DOSES UNKNOWN
     Route: 031
     Dates: start: 20180116
  9. DANCOR [Suspect]
     Active Substance: NICORANDIL
     Route: 048
  10. ATORVASTATIN [Concomitant]
     Active Substance: ATORVASTATIN
     Route: 048
  11. VI?DE 3 [Concomitant]
     Active Substance: CHOLECALCIFEROL
     Route: 048

REACTIONS (3)
  - Haemoglobin decreased [Recovered/Resolved]
  - Gastrointestinal haemorrhage [Recovered/Resolved]
  - Ileus [Recovered/Resolved]

NARRATIVE: CASE EVENT DATE: 20180706
